FAERS Safety Report 13717599 (Version 1)
Quarter: 2017Q3

REPORT INFORMATION
  Report Type: Spontaneous
  Country: US (occurrence: US)
  Receive Date: 20170705
  Receipt Date: 20170705
  Transmission Date: 20171127
  Serious: No
  Sender: FDA-Public Use
  Company Number: US-GLAXOSMITHKLINE-US2017099355

PATIENT
  Sex: Female

DRUGS (1)
  1. MEMBERS MARK NICOTINE [Suspect]
     Active Substance: NICOTINE
     Indication: PRODUCT USED FOR UNKNOWN INDICATION
     Dosage: 21 MG, UNK
     Dates: end: 20170622

REACTIONS (3)
  - Application site irritation [Unknown]
  - Wrong technique in product usage process [Unknown]
  - Product quality issue [Unknown]
